FAERS Safety Report 7524527-9 (Version None)
Quarter: 2011Q2

REPORT INFORMATION
  Report Type: 
  Country: None (occurrence: None)
  Receive Date: 20110606
  Receipt Date: 20110523
  Transmission Date: 20111010
  Serious: Yes (Hospitalization)
  Sender: FDA-Public Use
  Company Number: US-BAYER-201024052NA

PATIENT
  Age: 28 Year
  Sex: Female
  Weight: 113.38 kg

DRUGS (9)
  1. PAXIL [Concomitant]
     Indication: HEADACHE
     Dosage: 20 MG, CONT
     Route: 048
     Dates: start: 20070101
  2. YAZ [Suspect]
     Indication: ORAL CONTRACEPTION
     Dosage: UNK
     Route: 048
     Dates: start: 20070901, end: 20071201
  3. DOXYCYCLINE [Concomitant]
     Dosage: UNK
     Route: 048
     Dates: start: 20071001
  4. NEXIUM [Concomitant]
     Indication: GASTROOESOPHAGEAL REFLUX DISEASE
     Dosage: 40 MG, CONT
     Route: 048
     Dates: start: 20060101
  5. VICODIN [Concomitant]
     Indication: TOOTHACHE
     Dosage: UNK
     Route: 048
     Dates: start: 20071204, end: 20071215
  6. PHENTERMINE [Concomitant]
     Indication: MEDICAL DIET
     Dosage: 30 MG, BID
     Route: 048
     Dates: start: 20071001
  7. MIRCETTE [Concomitant]
  8. YAZ [Suspect]
     Indication: PREMENSTRUAL SYNDROME
     Dosage: UNK
     Dates: start: 20071001, end: 20071201
  9. YAZ [Suspect]
     Indication: MENSTRUATION IRREGULAR

REACTIONS (7)
  - ANXIETY [None]
  - FEAR [None]
  - PULMONARY EMBOLISM [None]
  - HAEMOPTYSIS [None]
  - PULMONARY THROMBOSIS [None]
  - MUSCLE SPASMS [None]
  - PAIN [None]
